FAERS Safety Report 9525333 (Version 1)
Quarter: 2013Q3

REPORT INFORMATION
  Report Type: Spontaneous
  Country: US (occurrence: None)
  Receive Date: 20130913
  Receipt Date: 20130913
  Transmission Date: 20140515
  Serious: Yes (Other)
  Sender: FDA-Public Use
  Company Number: None

PATIENT
  Age: 52 Year
  Sex: Female

DRUGS (1)
  1. RIBAVIRIN [Suspect]
     Dosage: 600MG BID PO
     Route: 048
     Dates: start: 20130425

REACTIONS (1)
  - White blood cell count increased [None]
